FAERS Safety Report 15937913 (Version 1)
Quarter: 2019Q1

REPORT INFORMATION
  Report Type: Spontaneous
  Country: FR (occurrence: FR)
  Receive Date: 20190208
  Receipt Date: 20190208
  Transmission Date: 20190417
  Serious: Yes (Hospitalization)
  Sender: FDA-Public Use
  Company Number: FR-PFIZER INC-2006127418

PATIENT
  Age: 40 Year
  Sex: Female
  Weight: 46 kg

DRUGS (5)
  1. TAHOR [Suspect]
     Active Substance: ATORVASTATIN CALCIUM
     Dosage: UNK
     Route: 048
     Dates: start: 20040615, end: 20060823
  2. QUININE [Suspect]
     Active Substance: QUININE
     Indication: TYPHOID FEVER
     Dosage: UNK
     Route: 048
     Dates: start: 20060819, end: 20060827
  3. CIFLOX [CIPROFLOXACIN HYDROCHLORIDE] [Suspect]
     Active Substance: CIPROFLOXACIN HYDROCHLORIDE
     Indication: MALARIA
  4. QUININE [Suspect]
     Active Substance: QUININE
     Indication: MALARIA
  5. CIFLOX [CIPROFLOXACIN HYDROCHLORIDE] [Suspect]
     Active Substance: CIPROFLOXACIN HYDROCHLORIDE
     Indication: TYPHOID FEVER
     Dosage: UNK
     Route: 048
     Dates: start: 20060819, end: 20060827

REACTIONS (6)
  - Hepatitis cholestatic [Recovered/Resolved]
  - Hallucination [Recovered/Resolved]
  - Disorientation [Recovered/Resolved]
  - Hepatitis [Recovered/Resolved]
  - Jaundice [Recovered/Resolved]
  - Agitation [Recovered/Resolved]

NARRATIVE: CASE EVENT DATE: 20060825
